FAERS Safety Report 19589197 (Version 2)
Quarter: 2021Q3

REPORT INFORMATION
  Report Type: Spontaneous
  Country: CN (occurrence: CN)
  Receive Date: 20210721
  Receipt Date: 20210723
  Transmission Date: 20211014
  Serious: Yes (Other)
  Sender: FDA-Public Use
  Company Number: CN-ORGANON-O2107CHN001284

PATIENT
  Age: 62 Year
  Sex: Male

DRUGS (2)
  1. EZETROL [Suspect]
     Active Substance: EZETIMIBE
     Indication: HYPERLIPIDAEMIA
     Dosage: 1 TABLET (1 DOSAGE FORM) PER DAY (QD)
     Route: 048
     Dates: start: 20210406, end: 20210615
  2. XUE ZHI KANG [Concomitant]
     Indication: HYPERLIPIDAEMIA
     Dosage: 2 CAPSULES (2 DOSAGE FORM) (ALSO REPORTED AS TABLET), TWICE A DAY (BID)
     Route: 048
     Dates: start: 20210406, end: 20210615

REACTIONS (2)
  - Myocardial necrosis marker increased [Recovering/Resolving]
  - Hepatic function abnormal [Recovering/Resolving]

NARRATIVE: CASE EVENT DATE: 20210613
